FAERS Safety Report 9398538 (Version 1)
Quarter: 2013Q3

REPORT INFORMATION
  Report Type: Spontaneous
  Country: US (occurrence: US)
  Receive Date: 20130712
  Receipt Date: 20130712
  Transmission Date: 20140515
  Serious: Yes (Hospitalization, Other)
  Sender: FDA-Public Use
  Company Number: US-BRISTOL-MYERS SQUIBB COMPANY-18905414

PATIENT
  Age: 72 Year
  Sex: Male
  Weight: 74.37 kg

DRUGS (4)
  1. ORENCIA [Suspect]
     Indication: RHEUMATOID ARTHRITIS
     Dosage: LAST DOSE: MAY2012 OR JUN2012
     Route: 042
  2. METHOTREXATE [Concomitant]
  3. FOSAMAX [Concomitant]
  4. TESTOSTERONE CYPIONATE [Concomitant]
     Dosage: 1DF:200 MG/ML

REACTIONS (5)
  - Non-Hodgkin^s lymphoma [Recovered/Resolved]
  - Pulmonary mass [Unknown]
  - Cough [Unknown]
  - Bronchitis [Unknown]
  - Chest discomfort [Unknown]
